FAERS Safety Report 15010832 (Version 1)
Quarter: 2018Q2

REPORT INFORMATION
  Report Type: Spontaneous
  Country: US (occurrence: US)
  Receive Date: 20180529
  Receipt Date: 20180529
  Transmission Date: 20180711
  Serious: Yes (Hospitalization, Other)
  Sender: FDA-Public Use
  Company Number: None

PATIENT
  Sex: Male

DRUGS (15)
  1. CLOPIDOGREL [Concomitant]
     Active Substance: CLOPIDOGREL BISULFATE
  2. MYFORTIC [Suspect]
     Active Substance: MYCOPHENOLATE SODIUM
     Indication: RENAL TRANSPLANT
     Route: 048
     Dates: start: 20120925
  3. PREDNISONE. [Concomitant]
     Active Substance: PREDNISONE
  4. HYDROCO/APAP [Concomitant]
     Active Substance: ACETAMINOPHEN\HYDROCODONE
  5. CARVEDILOL. [Concomitant]
     Active Substance: CARVEDILOL
  6. VITAMIN D [Concomitant]
     Active Substance: CHOLECALCIFEROL
  7. ASPIRIN. [Concomitant]
     Active Substance: ASPIRIN
  8. FAMOTIDINE. [Concomitant]
     Active Substance: FAMOTIDINE
  9. PRAVASTATIN. [Concomitant]
     Active Substance: PRAVASTATIN
  10. TAMSULIN [Concomitant]
  11. FISH OIL [Concomitant]
     Active Substance: FISH OIL
  12. MULTI VIT [Concomitant]
  13. VITAMIN B12 [Concomitant]
     Active Substance: CYANOCOBALAMIN
  14. NITROGLYCERN [Concomitant]
  15. CALCITRIOL. [Concomitant]
     Active Substance: CALCITRIOL

REACTIONS (1)
  - Myocardial infarction [None]
